FAERS Safety Report 4299474-9 (Version None)
Quarter: 2004Q1

REPORT INFORMATION
  Report Type: 
  Country: None (occurrence: None)
  Receive Date: 20040219
  Receipt Date: 20040217
  Transmission Date: 20041129
  Serious: Yes (Hospitalization, Other)
  Sender: FDA-Public Use
  Company Number: US-GLAXOSMITHKLINE-A0498533A

PATIENT
  Age: 40 Year
  Sex: Female

DRUGS (16)
  1. ZIAGEN [Suspect]
     Indication: HIV INFECTION
     Dosage: 300MG TWICE PER DAY
     Route: 048
     Dates: start: 20040212
  2. RENAGEL [Concomitant]
  3. MEPRON [Concomitant]
  4. TIGAN [Concomitant]
  5. VIDEX [Concomitant]
  6. EPIVIR [Concomitant]
  7. LOPRESSOR [Concomitant]
  8. PREMARIN [Concomitant]
  9. SYNTHROID [Concomitant]
  10. COLACE [Concomitant]
  11. FLONASE [Concomitant]
  12. FLUCONAZOL [Concomitant]
  13. ZIRTEC [Concomitant]
  14. PREVACID [Concomitant]
  15. UNASYN [Concomitant]
  16. ZYRTEC [Concomitant]

REACTIONS (2)
  - GASTROINTESTINAL HAEMORRHAGE [None]
  - HAEMORRHAGE [None]
